FAERS Safety Report 8679964 (Version 3)
Quarter: 2013Q3

REPORT INFORMATION
  Report Type: Spontaneous
  Country: US (occurrence: None)
  Receive Date: 20120706
  Receipt Date: 20130815
  Transmission Date: 20140515
  Serious: Yes (Other)
  Sender: FDA-Public Use
  Company Number: ADR-2012-00021

PATIENT
  Sex: Male

DRUGS (3)
  1. LIORESAL [Suspect]
     Indication: MUSCLE SPASTICITY
     Dosage: INTRACTABLE SPASTICITY POST SPINAL CORD INJURY
     Route: 037
  2. LIORESAL [Suspect]
     Indication: SPINAL CORD INJURY
     Dosage: INTRACTABLE SPASTICITY POST SPINAL CORD INJURY
     Route: 037
  3. DANTRIUM [Concomitant]

REACTIONS (4)
  - Staphylococcal infection [None]
  - Infection [None]
  - Pyrexia [None]
  - Staphylococcal bacteraemia [None]
